FAERS Safety Report 8760343 (Version 2)
Quarter: 2012Q4

REPORT INFORMATION
  Report Type: Spontaneous
  Country: JP (occurrence: None)
  Receive Date: 20120820
  Receipt Date: 20120905
  Transmission Date: 20130627
  Serious: Yes (Other)
  Sender: FDA-Public Use
  Company Number: JP-2012-16024

PATIENT
  Age: 74 Year
  Sex: Male

DRUGS (22)
  1. SAMSCA (TOLVAPTAN) TABLET [Suspect]
     Indication: FLUID RETENTION
     Route: 048
     Dates: start: 20120722, end: 20120725
  2. SAMSCA (TOLVAPTAN) TABLET [Suspect]
     Indication: FLUID RETENTION
     Route: 048
     Dates: start: 20120726, end: 20120730
  3. SAMSCA (TOLVAPTAN) TABLET [Suspect]
     Indication: FLUID RETENTION
     Route: 048
     Dates: start: 20120731, end: 20120802
  4. SAMSCA (TOLVAPTAN) TABLET [Suspect]
     Indication: FLUID RETENTION
     Route: 048
     Dates: start: 20120803
  5. SAMSCA (TOLVAPTAN) TABLET [Suspect]
     Indication: FLUID RETENTION
     Route: 048
     Dates: start: 20120731
  6. FUROSEMIDE [Suspect]
     Route: 048
     Dates: start: 20120726, end: 20120730
  7. FUROSEMIDE [Suspect]
     Route: 048
     Dates: start: 20120731
  8. CARPERITIDE [Concomitant]
  9. PANTOSIN (PANTETHINE) [Concomitant]
  10. LASIX (FUROSEMIDE) INJECTION [Concomitant]
  11. CRAVIT (LEVOFLOXACIN) TABLET [Concomitant]
  12. MAGMITT (MAGNESIUM OXIDE) TABLET [Concomitant]
  13. BAYASPIRIN (ACETYLSALICYLIC ACID) TABLET [Concomitant]
  14. NESINA (ALOGLIPTIN BENZOATE) TABLET [Concomitant]
  15. PLAVIX (CLOPIDOGREL SULFATE) TABLET [Concomitant]
  16. TAKEPRON (LANSOPRAZOLE) [Concomitant]
  17. ARTIST (CARVEDILOL) TABLET [Concomitant]
  18. LIVALO (PITAVASTATIN CALCIUM) TABLET [Concomitant]
  19. WARFARIN (WARFARIN POTASSIUM) [Concomitant]
  20. PURSENNID (SENNOSIDE A+AB CALCIUM) [Concomitant]
  21. AMARYL (GLIMEPIRIDE) TABLET [Concomitant]
  22. ANCARON (AMIODARONE HYDROCHLORIDE) [Concomitant]

REACTIONS (5)
  - Blood urea increased [None]
  - Hyperuricaemia [None]
  - Insomnia [None]
  - Thirst [None]
  - Hypothyroidism [None]
